FAERS Safety Report 6265893-4 (Version None)
Quarter: 2009Q3

REPORT INFORMATION
  Report Type: 
  Country: None (occurrence: None)
  Receive Date: 20090709
  Receipt Date: 20090709
  Transmission Date: 20100115
  Serious: Yes (Death, Life-Threatening, Hospitalization)
  Sender: FDA-Public Use
  Company Number: None

PATIENT
  Age: 69 Year
  Sex: Female
  Weight: 63.5036 kg

DRUGS (1)
  1. DOXIL [Suspect]
     Indication: FALLOPIAN TUBE CANCER
     Dosage: 20MG/M2/- MUST BE LESS WITH ONCE A MONTH IV DRIP  LIVER DISEASE. GIVEN FULL DOSE  3  TREATMENTS
     Route: 041
     Dates: start: 20080624, end: 20080816

REACTIONS (1)
  - HEPATIC FAILURE [None]
